FAERS Safety Report 4288897-X (Version None)
Quarter: 2004Q1

REPORT INFORMATION
  Report Type: 
  Country: None (occurrence: None)
  Receive Date: 20040209
  Receipt Date: 20040209
  Transmission Date: 20041129
  Serious: Yes (Disabling, Other)
  Sender: FDA-Public Use
  Company Number: None

PATIENT
  Age: 26 Year
  Sex: Female
  Weight: 70.3075 kg

DRUGS (2)
  1. ZICAM (ZINCUM GLUCONICUM) [Suspect]
     Indication: RHINORRHOEA
     Dosage: 1 SPRAY 2X DAILY NASAL
     Route: 045
     Dates: start: 20040129, end: 20040131
  2. ZICAM (ZINCUM GLUCONICUM) [Suspect]
     Indication: THROAT IRRITATION
     Dosage: 1 SPRAY 2X DAILY NASAL
     Route: 045
     Dates: start: 20040129, end: 20040131

REACTIONS (3)
  - AGEUSIA [None]
  - ANOSMIA [None]
  - NASAL DISCOMFORT [None]
